FAERS Safety Report 5088524-8 (Version None)
Quarter: 2006Q3

REPORT INFORMATION
  Report Type: 
  Country: None (occurrence: None)
  Receive Date: 20060822
  Receipt Date: 20060808
  Transmission Date: 20061208
  Serious: Yes (Death, Other)
  Sender: FDA-Public Use
  Company Number: 2006AL002250

PATIENT
  Age: 45 Year
  Sex: Female

DRUGS (7)
  1. CITALOPRAM HYDROBROMIDE [Suspect]
     Indication: DEPRESSION
     Dosage: 20 MG; QD; UNKNOWN
     Route: 065
     Dates: start: 20031001
  2. ARIPRAZOLE [Concomitant]
  3. KEMADRIN [Concomitant]
  4. KEPPRA [Concomitant]
  5. TEGRETOL [Concomitant]
  6. FEMODENE [Concomitant]
  7. SOLIAN [Concomitant]

REACTIONS (1)
  - DEATH [None]
